FAERS Safety Report 8109554-5 (Version None)
Quarter: 2012Q1

REPORT INFORMATION
  Report Type: 
  Country: None (occurrence: None)
  Receive Date: 20120202
  Receipt Date: 20120130
  Transmission Date: 20120608
  Serious: Yes (Other)
  Sender: FDA-Public Use
  Company Number: US-PFIZER INC-2012025968

PATIENT

DRUGS (3)
  1. ALPRAZOLAM [Suspect]
     Dosage: UNK
     Dates: start: 20090101
  2. ALPRAZOLAM [Suspect]
     Indication: POST-TRAUMATIC STRESS DISORDER
     Dosage: 2 MG, 3X/DAY
  3. ALPRAZOLAM [Suspect]
     Indication: ANXIETY DISORDER

REACTIONS (3)
  - DRUG INEFFECTIVE [None]
  - ROAD TRAFFIC ACCIDENT [None]
  - CONCUSSION [None]
